FAERS Safety Report 18363514 (Version 3)
Quarter: 2021Q2

REPORT INFORMATION
  Report Type: Spontaneous
  Country: US (occurrence: US)
  Receive Date: 20201008
  Receipt Date: 20210413
  Transmission Date: 20210717
  Serious: Yes (Hospitalization, Other)
  Sender: FDA-Public Use
  Company Number: US-INCYTE CORPORATION-2020IN009649

PATIENT

DRUGS (2)
  1. JAKAFI [Suspect]
     Active Substance: RUXOLITINIB
     Indication: MYELOFIBROSIS
     Dosage: 15 MILLIGRAM, QD
     Route: 048
     Dates: start: 20190621
  2. JAKAFI [Suspect]
     Active Substance: RUXOLITINIB
     Dosage: 15 MILLIGRAM, BID
     Route: 048
     Dates: start: 201906

REACTIONS (4)
  - Urinary tract infection [Unknown]
  - Dehydration [Unknown]
  - Hypothyroidism [Unknown]
  - Blood potassium increased [Unknown]

NARRATIVE: CASE EVENT DATE: 202009
